FAERS Safety Report 8134570-7 (Version None)
Quarter: 2012Q1

REPORT INFORMATION
  Report Type: 
  Country: None (occurrence: None)
  Receive Date: 20120214
  Receipt Date: 20120209
  Transmission Date: 20120608
  Serious: No
  Sender: FDA-Public Use
  Company Number: US-PFIZER INC-2012020412

PATIENT
  Sex: Female
  Weight: 52.154 kg

DRUGS (2)
  1. CHANTIX [Suspect]
     Dosage: 0.5 MG, DAILY
     Dates: start: 20110101, end: 20110101
  2. CHANTIX [Suspect]
     Indication: SMOKING CESSATION THERAPY
     Dosage: UNK

REACTIONS (1)
  - DRUG INEFFECTIVE [None]
